FAERS Safety Report 5292349-8 (Version None)
Quarter: 2007Q2

REPORT INFORMATION
  Report Type: 
  Country: None (occurrence: None)
  Receive Date: 20070410
  Receipt Date: 20070404
  Transmission Date: 20071010
  Serious: Yes (Death, Hospitalization, Other)
  Sender: FDA-Public Use
  Company Number: DE-PFIZER INC-2007023580

PATIENT
  Age: 36 Year
  Sex: Male

DRUGS (8)
  1. HALCION [Suspect]
     Indication: SLEEP DISORDER
     Route: 048
  2. DIAZEPAM [Concomitant]
     Route: 048
  3. NEUROCIL [Concomitant]
     Route: 048
  4. MELLARIL [Concomitant]
     Route: 048
  5. APONAL [Concomitant]
     Route: 048
  6. ROHYPNOL [Concomitant]
  7. ANTIDEPRESSANTS [Concomitant]
  8. LEVOTHYROXINE SODIUM [Concomitant]
     Route: 048

REACTIONS (13)
  - AGGRESSION [None]
  - ANXIETY [None]
  - COMPLETED SUICIDE [None]
  - DEPRESSION [None]
  - DRUG SCREEN POSITIVE [None]
  - INTENTIONAL DRUG MISUSE [None]
  - INTENTIONAL OVERDOSE [None]
  - NIGHT SWEATS [None]
  - PSYCHOTIC DISORDER [None]
  - RESTLESSNESS [None]
  - SLEEP DISORDER [None]
  - SUICIDAL IDEATION [None]
  - SUICIDE ATTEMPT [None]
